FAERS Safety Report 4496362-X (Version None)
Quarter: 2004Q4

REPORT INFORMATION
  Report Type: 
  Country: None (occurrence: None)
  Receive Date: 20041104
  Receipt Date: 20041019
  Transmission Date: 20050328
  Serious: Yes (Hospitalization)
  Sender: FDA-Public Use
  Company Number: 2004IM000905

PATIENT
  Age: 46 Year
  Sex: Female
  Weight: 93.441 kg

DRUGS (3)
  1. INFERGEN [Suspect]
     Indication: HEPATITIS C
     Dosage: 15 UG; QD; SUBCUTANEOUS
     Route: 058
     Dates: start: 20041008, end: 20041018
  2. RIBAVIRIN [Suspect]
     Indication: HEPATITIS C
     Dosage: 600 MG; BID; ORAL
     Route: 048
     Dates: start: 20041008, end: 20041019
  3. LOTREL [Concomitant]

REACTIONS (1)
  - RENAL FAILURE ACUTE [None]
